FAERS Safety Report 5342703-0 (Version None)
Quarter: 2007Q2

REPORT INFORMATION
  Report Type: 
  Country: None (occurrence: None)
  Receive Date: 20070601
  Receipt Date: 20070329
  Transmission Date: 20071010
  Serious: No
  Sender: FDA-Public Use
  Company Number: A0643556A

PATIENT
  Age: 45 Year
  Sex: Male
  Weight: 68.2 kg

DRUGS (5)
  1. AUGMENTIN '125' [Suspect]
     Indication: SINUSITIS
     Dosage: 875MG TWICE PER DAY
     Route: 048
     Dates: start: 20070130
  2. TENORMIN [Concomitant]
  3. MAXZIDE [Concomitant]
  4. PRILOSEC [Concomitant]
  5. ADDERALL 10 [Concomitant]

REACTIONS (2)
  - BLOOD PRESSURE INCREASED [None]
  - DRUG INTERACTION [None]
